FAERS Safety Report 10258729 (Version 1)
Quarter: 2014Q2

REPORT INFORMATION
  Report Type: Spontaneous
  Country: FR (occurrence: None)
  Receive Date: 20140623
  Receipt Date: 20140623
  Transmission Date: 20141212
  Serious: Yes (Hospitalization)
  Sender: FDA-Public Use
  Company Number: SYM-2014-22050

PATIENT
  Age: 88 Year
  Sex: Female

DRUGS (9)
  1. FLAGYL [Suspect]
     Indication: PNEUMONIA
     Route: 048
     Dates: start: 20140505, end: 20140518
  2. CEFTRIAXONE (CEFTRIAXONE) [Suspect]
     Indication: PNEUMONIA
     Route: 048
     Dates: start: 20140505, end: 20140518
  3. LEVOTHYROXINE (LEVOTHYROXINE SODIUM) (LEVOTHYROXINE SODIUM) [Concomitant]
  4. CARDENSIEL (BISOPROLOL FUMARARTE) (BISOPROLOL FUMARATE) [Concomitant]
  5. PERINDOPRIL (PERINDOPRIL) [Concomitant]
  6. IMOVANE (ZOPICLONE) (ZOPICLONE) [Concomitant]
  7. LASILIX (FUROSEMIDE) (FUROSEMIDE) [Concomitant]
  8. PREVISCAN (FLUINDIONE) (FLUINDIONE) [Concomitant]
  9. ANASTROZOLE (ANASTROZOLE) [Concomitant]

REACTIONS (1)
  - Rash maculo-papular [None]
